FAERS Safety Report 5162278-9 (Version None)
Quarter: 2006Q4

REPORT INFORMATION
  Report Type: 
  Country: None (occurrence: None)
  Receive Date: 20060919
  Receipt Date: 20060630
  Transmission Date: 20070319
  Serious: No
  Sender: FDA-Public Use
  Company Number: 2006US001413

PATIENT
  Age: 72 Year
  Sex: Female

DRUGS (5)
  1. VESICARE [Suspect]
     Indication: HYPERTONIC BLADDER
     Dosage: 5 MG, UID/QD, ORAL; SEE IMAGE
     Route: 048
     Dates: start: 20050101, end: 20060401
  2. VESICARE [Suspect]
     Indication: HYPERTONIC BLADDER
     Dosage: 5 MG, UID/QD, ORAL; SEE IMAGE
     Route: 048
     Dates: start: 20060601
  3. CIPRO [Concomitant]
  4. BACTRIM (TRIMETHOPRIM) [Concomitant]
  5. ENABLEX [Concomitant]

REACTIONS (5)
  - CONSTIPATION [None]
  - DIZZINESS POSTURAL [None]
  - DRUG INEFFECTIVE [None]
  - DYSPEPSIA [None]
  - ERUCTATION [None]
